FAERS Safety Report 22082027 (Version 1)
Quarter: 2023Q1

REPORT INFORMATION
  Report Type: Other
  Country: US (occurrence: None)
  Receive Date: 20230310
  Receipt Date: 20230310
  Transmission Date: 20230417
  Serious: Yes (Other)
  Sender: FDA-Public Use
  Company Number: US-ROCHE-3262176

PATIENT
  Age: 69 Year
  Sex: Male

DRUGS (4)
  1. PULMOZYME [Suspect]
     Active Substance: DORNASE ALFA
     Indication: Secretion discharge
     Dosage: NEBULIZE THE CONTENTS OF 1 VIAL(S) TWICE A DAY
     Route: 055
  2. PULMOZYME [Suspect]
     Active Substance: DORNASE ALFA
     Indication: Respiratory failure
  3. PULMOZYME [Suspect]
     Active Substance: DORNASE ALFA
     Indication: Bronchiectasis
  4. PULMOZYME [Suspect]
     Active Substance: DORNASE ALFA
     Indication: Respiratory failure

REACTIONS (2)
  - Quadriplegia [Unknown]
  - Off label use [Unknown]
